FAERS Safety Report 20577515 (Version 1)
Quarter: 2022Q1

REPORT INFORMATION
  Report Type: Spontaneous
  Country: CA (occurrence: None)
  Receive Date: 20220310
  Receipt Date: 20220310
  Transmission Date: 20220423
  Serious: Yes (Hospitalization)
  Sender: FDA-Public Use
  Company Number: CA-ADIENNEP-2022AD000198

PATIENT
  Age: 46 Year
  Sex: Female
  Weight: 49 kg

DRUGS (31)
  1. THIOTEPA [Suspect]
     Active Substance: THIOTEPA
     Indication: Bone marrow transplant
  2. BUSULFAN [Suspect]
     Active Substance: BUSULFAN
     Indication: Bone marrow transplant
  3. FLUDARABINE [Suspect]
     Active Substance: FLUDARABINE PHOSPHATE
     Indication: Bone marrow transplant
  4. CYCLOPHOSPHAMIDE [Suspect]
     Active Substance: CYCLOPHOSPHAMIDE
     Indication: Bone marrow transplant
  5. MESNA [Suspect]
     Active Substance: MESNA
     Indication: Bone marrow transplant
  6. CURCUMIN/CURCUMA LONGA RHIZOME [Concomitant]
  7. DEXAMETHASONE [Concomitant]
     Active Substance: DEXAMETHASONE
     Dosage: ()
  8. EMEND [Concomitant]
     Active Substance: APREPITANT
     Dosage: ()
  9. ENOXAPARIN [Concomitant]
     Active Substance: ENOXAPARIN
     Dosage: ()
  10. ESTRADIOL [Concomitant]
     Active Substance: ESTRADIOL
  11. FLUCONAZOLE [Concomitant]
     Active Substance: FLUCONAZOLE
     Dosage: ()
  12. FUROSEMIDE [Concomitant]
     Active Substance: FUROSEMIDE
     Dosage: ()
  13. FUSIDIC ACID [Concomitant]
     Active Substance: FUSIDIC ACID
  14. TEA [Concomitant]
     Active Substance: TEA LEAF
     Dosage: ()
  15. LANSOPRAZOLE [Concomitant]
     Active Substance: LANSOPRAZOLE
     Dosage: ()
  16. LORAZEPAM [Concomitant]
     Active Substance: LORAZEPAM
     Dosage: ()
     Route: 065
  17. NYSTATIN [Concomitant]
     Active Substance: NYSTATIN
     Dosage: ()
  18. MAGNESIUM [Concomitant]
     Active Substance: MAGNESIUM
  19. MUPIROCIN [Concomitant]
     Active Substance: MUPIROCIN
     Dosage: ()
  20. OLANZAPINE [Concomitant]
     Active Substance: OLANZAPINE
  21. OMEGA 3-6 [Concomitant]
     Dosage: ()
  22. OMEGA 3-6 [Concomitant]
     Dosage: ()
  23. ONDANSETRON [Concomitant]
     Active Substance: ONDANSETRON
  24. PHENYTOIN [Concomitant]
     Active Substance: PHENYTOIN
     Dosage: ()
  25. PROCHLORPERAZINE [Concomitant]
     Active Substance: PROCHLORPERAZINE
  26. PROGESTERONE [Concomitant]
     Active Substance: PROGESTERONE
     Dosage: ()
  27. URSODIOL [Concomitant]
     Active Substance: URSODIOL
  28. VALACYCLOVIR [Concomitant]
     Active Substance: VALACYCLOVIR HYDROCHLORIDE
  29. VITAMIN D [Concomitant]
     Active Substance: VITAMIN D NOS
  30. VITAMIN C [Concomitant]
     Active Substance: ASCORBIC ACID
  31. ZOPICLONE [Concomitant]
     Active Substance: ZOPICLONE
     Dosage: ()

REACTIONS (1)
  - Febrile neutropenia [Recovered/Resolved]
